FAERS Safety Report 20796301 (Version 1)
Quarter: 2022Q2

REPORT INFORMATION
  Report Type: Report from Study
  Country: US (occurrence: US)
  Receive Date: 20220506
  Receipt Date: 20220506
  Transmission Date: 20220720
  Serious: No
  Sender: FDA-Public Use
  Company Number: US-KYOWAKIRIN-2022BKK006607

PATIENT

DRUGS (2)
  1. MOGAMULIZUMAB [Suspect]
     Active Substance: MOGAMULIZUMAB
     Indication: Product used for unknown indication
     Dosage: UNK (1/2 DOSE IN JUNE OF 2020)
     Route: 042
     Dates: start: 202006
  2. MOGAMULIZUMAB [Suspect]
     Active Substance: MOGAMULIZUMAB
     Dosage: UNK (2ND WAS 1/6 DOSE IN JUNE 2021)
     Route: 042
     Dates: start: 202106

REACTIONS (1)
  - White blood cell count decreased [Recovered/Resolved]
